FAERS Safety Report 5220545-4 (Version None)
Quarter: 2007Q1

REPORT INFORMATION
  Report Type: 
  Country: None (occurrence: None)
  Receive Date: 20070125
  Receipt Date: 20070125
  Transmission Date: 20070707
  Serious: Yes (Hospitalization)
  Sender: FDA-Public Use
  Company Number: None

PATIENT
  Sex: Male
  Weight: 61.2356 kg

DRUGS (6)
  1. HUMALOG [Suspect]
     Indication: DIABETES MELLITUS
     Dosage: PRIOR TO ADMISSION
  2. HUMULIN R [Suspect]
     Indication: DIABETES MELLITUS
     Dosage: PRIOR TO ADMISSION
  3. BLOOD PRESSURE PILL [Concomitant]
  4. OXYCONTIN [Concomitant]
  5. CELEBREX [Concomitant]
  6. MUSCLE RELAXERS [Concomitant]

REACTIONS (1)
  - UNRESPONSIVE TO STIMULI [None]
